FAERS Safety Report 9133944 (Version 1)
Quarter: 2013Q1

REPORT INFORMATION
  Report Type: Spontaneous
  Country: US (occurrence: US)
  Receive Date: 20130118
  Receipt Date: 20130118
  Transmission Date: 20140127
  Serious: Yes (Other)
  Sender: FDA-Public Use
  Company Number: US-RB-047878-12

PATIENT
  Age: 65 Year
  Sex: Female
  Weight: 80.2 kg

DRUGS (7)
  1. MUCINEX FAST MAX ADULT DM (DEXTROMETHORPHAN HYDROBROMIDE) [Suspect]
     Indication: PRODUCT USED FOR UNKNOWN INDICATION
     Dosage: TOOK 2 DOSES 21 HOURS APART ON 10-DEC-2012 AND 11-DEC-2012
     Route: 048
     Dates: start: 20121210
  2. MUCINEX FAST MAX ADULT DM (GUAIFENESIN) [Suspect]
  3. LAMICTAL [Concomitant]
     Indication: PRODUCT USED FOR UNKNOWN INDICATION
  4. KEPPRA [Concomitant]
     Indication: CONVULSION
  5. KEPPRA [Concomitant]
     Indication: AFFECTIVE DISORDER
  6. LAMITOL [Concomitant]
     Indication: CONVULSION
  7. LAMITOL [Concomitant]
     Indication: MOOD ALTERED

REACTIONS (16)
  - Hypersensitivity [Recovered/Resolved]
  - Heart rate increased [Recovered/Resolved]
  - Lip swelling [Recovered/Resolved]
  - Local swelling [Recovered/Resolved]
  - Dyspnoea [Recovered/Resolved]
  - Night sweats [Recovered/Resolved]
  - Abnormal dreams [Recovered/Resolved]
  - Dry mouth [Recovered/Resolved]
  - Nervousness [Recovered/Resolved]
  - Thirst [Recovered/Resolved]
  - Feeling abnormal [Recovered/Resolved]
  - Feeling abnormal [Recovered/Resolved]
  - Dizziness [Recovered/Resolved]
  - Expired drug administered [Recovered/Resolved]
  - Accidental overdose [Recovered/Resolved]
  - Paraesthesia [Recovered/Resolved]
